FAERS Safety Report 9425140 (Version 3)
Quarter: 2013Q3

REPORT INFORMATION
  Report Type: Spontaneous
  Country: CA (occurrence: CA)
  Receive Date: 20130729
  Receipt Date: 20130910
  Transmission Date: 20140515
  Serious: Yes (Other)
  Sender: FDA-Public Use
  Company Number: CA-PFIZER INC-2013217171

PATIENT
  Age: 58 Year
  Sex: Female

DRUGS (1)
  1. PREGABALIN [Suspect]
     Dosage: 100 MG, AT BEDTIME
     Dates: start: 20130722, end: 20130724

REACTIONS (3)
  - Swelling [Not Recovered/Not Resolved]
  - Oedema peripheral [Recovered/Resolved]
  - Eye swelling [Recovered/Resolved]
